FAERS Safety Report 9846481 (Version 1)
Quarter: 2013Q4

REPORT INFORMATION
  Report Type: Spontaneous
  Country: US (occurrence: None)
  Receive Date: 20131223
  Receipt Date: 20131223
  Transmission Date: 20140711
  Serious: Yes (Other)
  Sender: FDA-Public Use
  Company Number: CABO-13003408

PATIENT
  Age: 58 Year
  Sex: Female

DRUGS (16)
  1. COMETRIQ (CABOZANTINIB) CAPSULE [Suspect]
     Indication: THYROID CANCER
     Route: 048
     Dates: start: 20130927
  2. INLYTA [Suspect]
     Dates: end: 20130927
  3. IMODIUM (LOPERAZMIDE HYDROCHLORIDE) [Concomitant]
  4. VITAMIN B6 (PYRIDOXINE HYDROCHLORIDE) [Concomitant]
  5. VITAMIN D3 (COLECALCIFEROL) [Concomitant]
  6. LEVOTHYROXINE (LEVOTHYROXINE SODIUM) [Concomitant]
  7. ASPIRIN (ACETYSALICYLIC ACID) [Concomitant]
  8. CALCIUM (CALCIUM CHLORIDE HEXAHYDRATE) [Concomitant]
  9. FISH OIL (FISH OIL) [Concomitant]
  10. LUDOCAINE (LIDOCAINE HYDROCHLORIDE) [Concomitant]
  11. KETOCONAZOLE (KETOCONAZOLE) [Concomitant]
  12. MULTIVITAMIN (VITAMINS NOS) [Concomitant]
  13. POTASSIUM CHLORIDE (POTASSIUM CHLORIDE) [Concomitant]
  14. PROBIOTIC (BIFIDOBACTERIUM LACTIS) [Concomitant]
  15. SUTENT (SUNTINIB MALATE) [Concomitant]
  16. SELENIUM (SELENIUM) [Concomitant]

REACTIONS (5)
  - Urinary tract infection [None]
  - Oedema peripheral [None]
  - Dysgeusia [None]
  - Palmar-plantar erythrodysaesthesia syndrome [None]
  - Tongue ulceration [None]
